FAERS Safety Report 8306429-3 (Version None)
Quarter: 2012Q2

REPORT INFORMATION
  Report Type: 
  Country: None (occurrence: None)
  Receive Date: 20120423
  Receipt Date: 20120417
  Transmission Date: 20120825
  Serious: Yes (Other)
  Sender: FDA-Public Use
  Company Number: US-AMGEN-USASP2012024298

PATIENT
  Age: 69 Year
  Sex: Female
  Weight: 70.1 kg

DRUGS (6)
  1. DOXORUBICIN HCL [Suspect]
     Indication: BREAST CANCER
     Dosage: UNK
     Dates: start: 20081014
  2. PEGFILGRASTIM [Suspect]
     Indication: BREAST CANCER
     Dosage: UNK
  3. CYCLOPHOSPHAMIDE [Suspect]
     Indication: BREAST CANCER
     Dosage: UNK
     Dates: start: 20081014
  4. PACLITAXEL [Suspect]
     Indication: BREAST CANCER
     Dosage: UNK
  5. BEVACIZUMAB [Suspect]
     Indication: BREAST CANCER
     Dosage: UNK UNK, Q3WK
     Route: 042
     Dates: start: 20081014
  6. HORMONES [Concomitant]

REACTIONS (1)
  - WOUND COMPLICATION [None]
